FAERS Safety Report 8593636-8 (Version None)
Quarter: 2012Q3

REPORT INFORMATION
  Report Type: 
  Country: None (occurrence: None)
  Receive Date: 20120814
  Receipt Date: 20120808
  Transmission Date: 20120928
  Serious: Yes (Hospitalization, Other)
  Sender: FDA-Public Use
  Company Number: JP-VERTEX PHARMACEUTICALS INC.-AE-2012-003529

PATIENT
  Age: 49 Year
  Sex: Female

DRUGS (23)
  1. TELAVIC [Suspect]
     Route: 048
     Dates: start: 20120302, end: 20120302
  2. LAC-B [Concomitant]
     Route: 048
     Dates: start: 20120522, end: 20120526
  3. PEGINTERFERON ALFA-2B [Concomitant]
     Route: 058
     Dates: start: 20120502, end: 20120502
  4. HACHIAZULE [Concomitant]
     Route: 051
     Dates: start: 20120222, end: 20120229
  5. PEGINTERFERON ALFA-2B [Concomitant]
     Route: 058
     Dates: start: 20120425
  6. REBETOL [Concomitant]
     Indication: HEPATITIS C
     Route: 048
     Dates: start: 20120125, end: 20120228
  7. APHTASOLON [Concomitant]
     Route: 051
     Dates: start: 20120215, end: 20120222
  8. LOXONIN [Concomitant]
     Route: 048
  9. MUCOSTA [Concomitant]
     Route: 048
  10. MOTILIUM [Concomitant]
     Route: 048
     Dates: start: 20120522, end: 20120526
  11. VITAMEDIN [Concomitant]
     Route: 048
     Dates: start: 20120629, end: 20120711
  12. PEGINTERFERON ALFA-2B [Concomitant]
     Route: 058
     Dates: start: 20120509, end: 20120606
  13. DESYREL [Concomitant]
     Route: 048
  14. LEXAPRO [Concomitant]
     Route: 048
  15. PRIMPERAN TAB [Concomitant]
     Dates: start: 20120522, end: 20120523
  16. TELAVIC [Suspect]
     Indication: HEPATITIS C
     Route: 048
     Dates: start: 20120125, end: 20120301
  17. PEGINTERFERON ALFA-2B [Concomitant]
     Indication: HEPATITIS C
     Route: 058
     Dates: start: 20120125, end: 20120229
  18. REBETOL [Concomitant]
     Route: 048
     Dates: start: 20120229, end: 20120305
  19. TELAVIC [Suspect]
     Route: 048
  20. PEGINTERFERON ALFA-2B [Concomitant]
     Route: 058
     Dates: start: 20120314
  21. PURSENNID [Concomitant]
     Route: 048
  22. PEGINTERFERON ALFA-2B [Concomitant]
     Route: 058
     Dates: start: 20120613, end: 20120704
  23. REBETOL [Concomitant]
     Route: 048
     Dates: start: 20120314, end: 20120711

REACTIONS (3)
  - NEUTROPHIL COUNT DECREASED [None]
  - DIZZINESS [None]
  - ASTHENIA [None]
